FAERS Safety Report 8235236-5 (Version None)
Quarter: 2012Q1

REPORT INFORMATION
  Report Type: 
  Country: None (occurrence: None)
  Receive Date: 20120322
  Receipt Date: 20120309
  Transmission Date: 20120608
  Serious: Yes (Other)
  Sender: FDA-Public Use
  Company Number: GGEL20120300268

PATIENT
  Age: 23 Year
  Sex: Female

DRUGS (1)
  1. NORGESTIMATE AND ETHINYL ESTRADIOL [Suspect]
     Indication: CONTRACEPTION
     Dosage: 0.18/0.35 MG, 1 IN 1 D, ORAL
     Route: 048

REACTIONS (6)
  - IRRITABILITY [None]
  - PREGNANCY ON ORAL CONTRACEPTIVE [None]
  - MATERNAL EXPOSURE DURING PREGNANCY [None]
  - PRODUCT QUALITY ISSUE [None]
  - DRUG INEFFECTIVE [None]
  - MOOD ALTERED [None]
